FAERS Safety Report 6679791-5 (Version None)
Quarter: 2010Q2

REPORT INFORMATION
  Report Type: 
  Country: None (occurrence: None)
  Receive Date: 20100413
  Receipt Date: 20090210
  Transmission Date: 20101027
  Serious: No
  Sender: FDA-Public Use
  Company Number: US-ASTRAZENECA-2009UW03701

PATIENT
  Age: 54 Year
  Sex: Female

DRUGS (3)
  1. ATENOLOL [Suspect]
     Dosage: UNKNOWN
     Route: 048
     Dates: start: 20080801
  2. PLAVIX [Suspect]
     Indication: CORONARY ARTERIAL STENT INSERTION
     Route: 048
     Dates: start: 20080801
  3. VYTORIN [Suspect]
     Dosage: UNKNOWN
     Route: 065
     Dates: start: 19990101

REACTIONS (2)
  - ARTHRALGIA [None]
  - MYALGIA [None]
